FAERS Safety Report 10601572 (Version 1)
Quarter: 2014Q4

REPORT INFORMATION
  Report Type: Spontaneous
  Country: US (occurrence: None)
  Receive Date: 20141121
  Receipt Date: 20141121
  Transmission Date: 20150529
  Serious: No
  Sender: FDA-Public Use
  Company Number: None

PATIENT
  Age: 13 Year
  Sex: Male

DRUGS (1)
  1. FOCALIN [Suspect]
     Active Substance: DEXMETHYLPHENIDATE HYDROCHLORIDE
     Dosage: QAM
     Route: 048

REACTIONS (3)
  - Product substitution issue [None]
  - Dyspnoea [None]
  - Rash [None]

NARRATIVE: CASE EVENT DATE: 20141106
